FAERS Safety Report 8613845-9 (Version None)
Quarter: 2012Q3

REPORT INFORMATION
  Report Type: 
  Country: None (occurrence: None)
  Receive Date: 20120823
  Receipt Date: 20120809
  Transmission Date: 20120928
  Serious: Yes (Hospitalization, Disabling, Other)
  Sender: FDA-Public Use
  Company Number: US-009507513-1205USA03594

PATIENT

DRUGS (4)
  1. FOSAMAX [Suspect]
     Indication: OSTEOPOROSIS
     Dosage: 70 MG, UNK
     Route: 048
     Dates: start: 20000101, end: 20060101
  2. BONIVA [Suspect]
     Indication: OSTEOPOROSIS
     Dosage: 150 MG, UNK
     Route: 048
     Dates: start: 20060418, end: 20100501
  3. CALCIUM (UNSPECIFIED) [Concomitant]
     Dosage: 2000 IU, UNK
     Dates: start: 19880101
  4. VITAMIN D [Concomitant]
     Dosage: 1200 MG, UNK
     Dates: start: 19880101

REACTIONS (76)
  - PERIPROSTHETIC FRACTURE [None]
  - SPINAL LAMINECTOMY [None]
  - SPINAL FUSION SURGERY [None]
  - BONE DISORDER [None]
  - BARRETT'S OESOPHAGUS [None]
  - RENAL STONE REMOVAL [None]
  - INTERVERTEBRAL DISC DISORDER [None]
  - EPIDURAL INJECTION [None]
  - URINARY TRACT INFECTION [None]
  - FEMUR FRACTURE [None]
  - DEVICE FAILURE [None]
  - ACETABULUM FRACTURE [None]
  - HUMERUS FRACTURE [None]
  - NEPHROLITHIASIS [None]
  - VITAMIN D DEFICIENCY [None]
  - CALCIUM DEFICIENCY [None]
  - CYSTOSCOPY [None]
  - STAG HORN CALCULUS [None]
  - DEVICE RELATED INFECTION [None]
  - NEEDLE ISSUE [None]
  - FRACTURE DELAYED UNION [None]
  - ANTIBIOTIC THERAPY [None]
  - FEMORAL NECK FRACTURE [None]
  - KNEE ARTHROPLASTY [None]
  - LUMBAR SPINAL STENOSIS [None]
  - STENT PLACEMENT [None]
  - COW'S MILK INTOLERANCE [None]
  - STRESS URINARY INCONTINENCE [None]
  - BENIGN BREAST NEOPLASM [None]
  - BREAST CALCIFICATIONS [None]
  - BIOPSY [None]
  - URINARY INCONTINENCE [None]
  - HYPERPARATHYROIDISM SECONDARY [None]
  - CHEST PAIN [None]
  - PSEUDARTHROSIS [None]
  - HEADACHE [None]
  - GASTROOESOPHAGEAL REFLUX DISEASE [None]
  - SURGERY [None]
  - HIP ARTHROPLASTY [None]
  - WOUND TREATMENT [None]
  - LOW TURNOVER OSTEOPATHY [None]
  - PUBIS FRACTURE [None]
  - ANXIETY [None]
  - BLOOD PRESSURE INCREASED [None]
  - LITHOTRIPSY [None]
  - POSTOPERATIVE WOUND COMPLICATION [None]
  - CYST [None]
  - DYSPEPSIA [None]
  - OPEN REDUCTION OF FRACTURE [None]
  - KNEE OPERATION [None]
  - TYPE 2 DIABETES MELLITUS [None]
  - CAROTID ARTERY DISEASE [None]
  - DIVERTICULUM [None]
  - SLEEP APNOEA SYNDROME [None]
  - LIMB ASYMMETRY [None]
  - BONE METABOLISM DISORDER [None]
  - ABDOMINAL PAIN [None]
  - GASTROINTESTINAL DISORDER [None]
  - HIATUS HERNIA [None]
  - BODY HEIGHT DECREASED [None]
  - HEPATIC STEATOSIS [None]
  - CORONARY ARTERY DISEASE [None]
  - STAPHYLOCOCCAL INFECTION [None]
  - CHONDROPATHY [None]
  - GASTRITIS [None]
  - DEPRESSION [None]
  - INSOMNIA [None]
  - PYELOGRAM RETROGRADE [None]
  - HAEMORRHOIDS [None]
  - RECTOCELE [None]
  - URGE INCONTINENCE [None]
  - BIOPSY BREAST [None]
  - IMPAIRED HEALING [None]
  - FRACTURE NONUNION [None]
  - ARTHRALGIA [None]
  - CONSTIPATION [None]
